FAERS Safety Report 17932911 (Version 5)
Quarter: 2020Q4

REPORT INFORMATION
  Report Type: Spontaneous
  Country: DK (occurrence: DK)
  Receive Date: 20200624
  Receipt Date: 20201014
  Transmission Date: 20210113
  Serious: Yes (Hospitalization)
  Sender: FDA-Public Use
  Company Number: DK-TEVA-2020-DK-1790623

PATIENT
  Age: 26 Year
  Sex: Female
  Weight: 86 kg

DRUGS (7)
  1. FEMICEPT [Concomitant]
     Active Substance: ETHINYL ESTRADIOL\LEVONORGESTREL
     Indication: MIGRAINE
     Dosage: 1 DOSAGE FORMS DAILY; STRENGTH: 150+30MICROGRAM
     Route: 048
     Dates: start: 20140624
  2. AJOVY [Suspect]
     Active Substance: FREMANEZUMAB-VFRM
     Indication: MIGRAINE
     Dosage: 3X 225MG IN THE UPPER EXTREMITY BY A NURSE (2 IN LEFT OVERARM AND 1 IN RIGHT OVERARM)
     Route: 030
     Dates: start: 20200603
  3. PHENEGAN [Concomitant]
     Indication: INITIAL INSOMNIA
     Route: 065
     Dates: start: 20150416
  4. MELATONIN [Concomitant]
     Active Substance: MELATONIN
     Indication: INITIAL INSOMNIA
     Route: 048
     Dates: start: 20181010
  5. CANDESARTAN. [Concomitant]
     Active Substance: CANDESARTAN
     Indication: MIGRAINE
     Dosage: 8 MILLIGRAM DAILY;
     Route: 048
     Dates: start: 20170220
  6. TIZANIDIN [Concomitant]
     Active Substance: TIZANIDINE HYDROCHLORIDE
     Indication: INITIAL INSOMNIA
     Dosage: 2 MILLIGRAM DAILY;
     Route: 048
     Dates: start: 20160525
  7. SERTRALINE [Concomitant]
     Active Substance: SERTRALINE HYDROCHLORIDE
     Indication: ANXIETY
     Dosage: 100 MILLIGRAM DAILY;
     Route: 048
     Dates: start: 2009

REACTIONS (15)
  - Abdominal pain upper [Not Recovered/Not Resolved]
  - Decreased appetite [Not Recovered/Not Resolved]
  - Fatigue [Not Recovered/Not Resolved]
  - Vomiting [Recovered/Resolved]
  - Nausea [Not Recovered/Not Resolved]
  - Migraine [Not Recovered/Not Resolved]
  - C-reactive protein increased [Not Recovered/Not Resolved]
  - Palpitations [Not Recovered/Not Resolved]
  - Pyrexia [Recovered/Resolved]
  - Tremor [Not Recovered/Not Resolved]
  - Restless legs syndrome [Not Recovered/Not Resolved]
  - Influenza [Recovered/Resolved]
  - Restlessness [Not Recovered/Not Resolved]
  - Chest discomfort [Not Recovered/Not Resolved]
  - Nausea [Recovering/Resolving]

NARRATIVE: CASE EVENT DATE: 20200604
